FAERS Safety Report 7536354-7 (Version None)
Quarter: 2011Q2

REPORT INFORMATION
  Report Type: 
  Country: None (occurrence: None)
  Receive Date: 20110602
  Receipt Date: 20100226
  Transmission Date: 20111010
  Serious: Yes (Disabling)
  Sender: FDA-Public Use
  Company Number: DK-SEPTODONT-201000058

PATIENT
  Age: 42 Year
  Sex: Female

DRUGS (2)
  1. SEPTOCAINE [Suspect]
     Indication: LOCAL ANAESTHESIA
     Dosage: DENTAL
     Route: 004
     Dates: start: 20030303
  2. SCANDONEST PLAIN [Suspect]
     Indication: LOCAL ANAESTHESIA
     Dosage: DENTAL
     Route: 004

REACTIONS (4)
  - PARAESTHESIA ORAL [None]
  - NERVE INJURY [None]
  - HYPOAESTHESIA [None]
  - ANAESTHETIC COMPLICATION [None]
